FAERS Safety Report 25738456 (Version 2)
Quarter: 2025Q4

REPORT INFORMATION
  Report Type: Spontaneous
  Country: EU (occurrence: EU)
  Receive Date: 20250829
  Receipt Date: 20251006
  Transmission Date: 20260118
  Serious: Yes (Other)
  Sender: CELLTRION
  Company Number: None

PATIENT

DRUGS (2)
  1. YUFLYMA [Suspect]
     Active Substance: ADALIMUMAB-AATY
     Indication: Spondylitis
     Dosage: 40 MILLIGRAM, EVERY 2 WEEKS (NAME PART - STRENGTH NAME: 40 MG/0.4 ML)
     Route: 058
     Dates: start: 20250402, end: 20250702
  2. YUFLYMA [Suspect]
     Active Substance: ADALIMUMAB-AATY

REACTIONS (3)
  - Polyarthritis [Recovered/Resolved]
  - Alopecia [Recovered/Resolved]
  - Product substitution issue [Recovered/Resolved]

NARRATIVE: CASE EVENT DATE: 20250402
